FAERS Safety Report 7928426-X (Version None)
Quarter: 2011Q4

REPORT INFORMATION
  Report Type: 
  Country: None (occurrence: None)
  Receive Date: 20111118
  Receipt Date: 20111114
  Transmission Date: 20120403
  Serious: Yes (Death)
  Sender: FDA-Public Use
  Company Number: JP-SANOFI-AVENTIS-2011SA043528

PATIENT
  Age: 75 Year
  Sex: Male
  Weight: 56.2 kg

DRUGS (4)
  1. TAXOTERE [Suspect]
     Route: 041
     Dates: start: 20110627, end: 20110627
  2. DEXAMETHASONE SODIUM PHOSPHATE [Concomitant]
     Route: 041
     Dates: start: 20110627, end: 20110627
  3. ALOXI [Concomitant]
     Route: 041
     Dates: start: 20110627, end: 20110627
  4. SALINE [Concomitant]
     Route: 041
     Dates: start: 20110627, end: 20110627

REACTIONS (11)
  - PYREXIA [None]
  - JAUNDICE [None]
  - RENAL FAILURE [None]
  - HEPATOMEGALY [None]
  - ANURIA [None]
  - SHOCK [None]
  - MALAISE [None]
  - CARDIAC TAMPONADE [None]
  - OLIGURIA [None]
  - DEHYDRATION [None]
  - HEPATIC FAILURE [None]
